FAERS Safety Report 17361643 (Version 1)
Quarter: 2020Q1

REPORT INFORMATION
  Report Type: Spontaneous
  Country: US (occurrence: US)
  Receive Date: 20200203
  Receipt Date: 20200203
  Transmission Date: 20200409
  Serious: No
  Sender: FDA-Public Use
  Company Number: US-PFIZER INC-2020044180

PATIENT
  Sex: Male
  Weight: 92.8 kg

DRUGS (1)
  1. CHANTIX [Suspect]
     Active Substance: VARENICLINE TARTRATE
     Indication: SMOKING CESSATION THERAPY
     Dosage: 1 MG, 2X/DAY (ONE TABLET TWICE A DAY)
     Route: 048

REACTIONS (7)
  - Abnormal dreams [Not Recovered/Not Resolved]
  - Screaming [Not Recovered/Not Resolved]
  - Aggression [Unknown]
  - Anger [Unknown]
  - Agitation [Not Recovered/Not Resolved]
  - Mental status changes [Unknown]
  - Insomnia [Not Recovered/Not Resolved]

NARRATIVE: CASE EVENT DATE: 20200128
